FAERS Safety Report 6484147-4 (Version None)
Quarter: 2009Q4

REPORT INFORMATION
  Report Type: 
  Country: None (occurrence: None)
  Receive Date: 20091203
  Receipt Date: 20091130
  Transmission Date: 20100525
  Serious: Yes (Other)
  Sender: FDA-Public Use
  Company Number: 8053998

PATIENT
  Age: 49 Year
  Sex: Male
  Weight: 101.5 kg

DRUGS (6)
  1. CERTOLIZUMAB PEGOL [Suspect]
     Indication: RHEUMATOID ARTHRITIS
     Dosage: 200 MG 1/2W SC
     Route: 058
     Dates: start: 20050613, end: 20060530
  2. CERTOLIZUMAB PEGOL [Suspect]
     Indication: RHEUMATOID ARTHRITIS
     Dosage: 400 MG 1/2W SC
     Route: 058
     Dates: start: 20060612, end: 20080512
  3. METHOTREXATE [Concomitant]
  4. METOXICAM [Concomitant]
  5. MEDROL [Concomitant]
  6. ACIDUM FOLICUM [Concomitant]

REACTIONS (1)
  - LATENT TUBERCULOSIS [None]
